FAERS Safety Report 6219144-7 (Version None)
Quarter: 2009Q2

REPORT INFORMATION
  Report Type: 
  Country: None (occurrence: None)
  Receive Date: 20090605
  Receipt Date: 20090605
  Transmission Date: 20091009
  Serious: Yes (Other)
  Sender: FDA-Public Use
  Company Number: None

PATIENT
  Sex: Male

DRUGS (1)
  1. TOPAMAX [Suspect]
     Dosage: 50 MG. LAST APPT. 5/19/09
     Dates: end: 20090519

REACTIONS (2)
  - DRUG INEFFECTIVE [None]
  - FATIGUE [None]
